FAERS Safety Report 11848776 (Version 2)
Quarter: 2016Q1

REPORT INFORMATION
  Report Type: Spontaneous
  Country: US (occurrence: US)
  Receive Date: 20151218
  Receipt Date: 20160104
  Transmission Date: 20160526
  Serious: Yes (Other)
  Sender: FDA-Public Use
  Company Number: US-CIPLA LTD.-2015US09369

PATIENT

DRUGS (2)
  1. TOPOTECAN [Suspect]
     Active Substance: TOPOTECAN\TOPOTECAN HYDROCHLORIDE
     Indication: RETINOBLASTOMA
     Dosage: 20 MCG, PRN
  2. MELPHALAN [Suspect]
     Active Substance: MELPHALAN
     Indication: RETINOBLASTOMA
     Dosage: 20-30 MCG

REACTIONS (2)
  - Necrotising retinitis [Recovered/Resolved]
  - Haemorrhage [Recovered/Resolved]
